FAERS Safety Report 7163395-4 (Version None)
Quarter: 2010Q4

REPORT INFORMATION
  Report Type: 
  Country: None (occurrence: None)
  Receive Date: 20101215
  Receipt Date: 20100411
  Transmission Date: 20110411
  Serious: Yes (Hospitalization, Other)
  Sender: FDA-Public Use
  Company Number: US-PFIZER INC-2010046039

PATIENT
  Sex: Male
  Weight: 95 kg

DRUGS (1)
  1. LYRICA [Suspect]
     Indication: FIBROMYALGIA
     Dosage: 100 MG, 2X/DAY
     Dates: start: 20090101, end: 20100409

REACTIONS (16)
  - CONVULSION [None]
  - DRUG INEFFECTIVE [None]
  - DYSSTASIA [None]
  - FIBROMYALGIA [None]
  - GRIP STRENGTH DECREASED [None]
  - HEART RATE DECREASED [None]
  - INJURY [None]
  - INTENTIONAL OVERDOSE [None]
  - MIGRAINE [None]
  - MUSCLE SPASMS [None]
  - MUSCLE TWITCHING [None]
  - RESPIRATORY FAILURE [None]
  - SHOCK [None]
  - SKIN DISCOLOURATION [None]
  - TONGUE DISCOLOURATION [None]
  - TREMOR [None]
